FAERS Safety Report 6557683-X (Version None)
Quarter: 2010Q1

REPORT INFORMATION
  Report Type: 
  Country: None (occurrence: None)
  Receive Date: 20100129
  Receipt Date: 20100119
  Transmission Date: 20100710
  Serious: Yes (Other)
  Sender: FDA-Public Use
  Company Number: DK-AMGEN-US387446

PATIENT
  Sex: Female

DRUGS (2)
  1. ENBREL [Suspect]
     Indication: ANKYLOSING SPONDYLITIS
     Dates: start: 20080108, end: 20090813
  2. REMICADE [Suspect]
     Indication: ANKYLOSING SPONDYLITIS
     Dosage: 300 MG EVERY
     Route: 042
     Dates: start: 20090813, end: 20091130

REACTIONS (4)
  - CHILLS [None]
  - DIARRHOEA [None]
  - HEADACHE [None]
  - HOT FLUSH [None]
